FAERS Safety Report 10899052 (Version 1)
Quarter: 2015Q1

REPORT INFORMATION
  Report Type: Other
  Country: GB (occurrence: GB)
  Receive Date: 20150309
  Receipt Date: 20150309
  Transmission Date: 20150721
  Serious: Yes (Hospitalization)
  Sender: FDA-Public Use
  Company Number: GB-PERRIGO-15GB002522

PATIENT
  Age: 18 Year
  Sex: Male

DRUGS (3)
  1. ASPIRIN 16028/0019 300 MG [Suspect]
     Active Substance: ASPIRIN
     Indication: ANALGESIC THERAPY
     Dosage: 300 MG, SINGLE
     Route: 048
  2. IBUPROFEN 16028/0027 200 MG [Suspect]
     Active Substance: IBUPROFEN
     Indication: TONSILLITIS
     Dosage: 400 MG, TID
     Route: 048
     Dates: start: 20150213, end: 20150217
  3. PHENOXYMETHYLPENICILLIN [Concomitant]
     Active Substance: PENICILLIN V
     Indication: TONSILLITIS
     Dosage: 500 MG, QID
     Route: 048
     Dates: start: 20150210, end: 20150217

REACTIONS (3)
  - Melaena [Recovering/Resolving]
  - Gastric haemorrhage [Recovering/Resolving]
  - Haematemesis [Recovering/Resolving]

NARRATIVE: CASE EVENT DATE: 20150221
